FAERS Safety Report 8048665-X (Version None)
Quarter: 2012Q1

REPORT INFORMATION
  Report Type: 
  Country: None (occurrence: None)
  Receive Date: 20120117
  Receipt Date: 20120109
  Transmission Date: 20120608
  Serious: Yes (Hospitalization)
  Sender: FDA-Public Use
  Company Number: US-BAYER-2010-002563

PATIENT
  Sex: Female
  Weight: 90.249 kg

DRUGS (3)
  1. NUVARING [Concomitant]
     Dosage: UNK
     Dates: start: 20060601, end: 20090701
  2. KARIVA [Concomitant]
     Dosage: UNK
     Dates: start: 20060601, end: 20090701
  3. YAZ [Suspect]
     Dosage: UNK
     Dates: start: 20060601, end: 20090701

REACTIONS (2)
  - INJURY [None]
  - GALLBLADDER INJURY [None]
